FAERS Safety Report 13016423 (Version 4)
Quarter: 2017Q2

REPORT INFORMATION
  Report Type: Spontaneous
  Country: US (occurrence: US)
  Receive Date: 20161212
  Receipt Date: 20170421
  Transmission Date: 20170830
  Serious: Yes (Hospitalization)
  Sender: FDA-Public Use
  Company Number: US-JNJFOC-20161201086

PATIENT
  Age: 69 Year
  Sex: Female

DRUGS (21)
  1. XARELTO [Suspect]
     Active Substance: RIVAROXABAN
     Indication: ATRIAL FIBRILLATION
     Route: 048
     Dates: end: 20170309
  2. XARELTO [Suspect]
     Active Substance: RIVAROXABAN
     Indication: PERIPHERAL VENOUS DISEASE
     Route: 048
     Dates: start: 20140506, end: 20161103
  3. XARELTO [Suspect]
     Active Substance: RIVAROXABAN
     Indication: CEREBROVASCULAR ACCIDENT PROPHYLAXIS
     Route: 048
     Dates: end: 20170309
  4. XARELTO [Suspect]
     Active Substance: RIVAROXABAN
     Indication: ATRIAL FIBRILLATION
     Route: 048
     Dates: start: 2013, end: 20140312
  5. XARELTO [Suspect]
     Active Substance: RIVAROXABAN
     Indication: ATRIAL FIBRILLATION
     Route: 048
     Dates: start: 20120605, end: 2013
  6. XARELTO [Suspect]
     Active Substance: RIVAROXABAN
     Indication: CARDIOVASCULAR DISORDER
     Route: 048
     Dates: start: 20140506, end: 20161103
  7. XARELTO [Suspect]
     Active Substance: RIVAROXABAN
     Indication: CARDIOVASCULAR DISORDER
     Route: 048
     Dates: end: 20170309
  8. XARELTO [Suspect]
     Active Substance: RIVAROXABAN
     Indication: PERIPHERAL VENOUS DISEASE
     Route: 048
     Dates: start: 2013, end: 20140312
  9. METOPROLOL. [Concomitant]
     Active Substance: METOPROLOL
     Indication: PRODUCT USED FOR UNKNOWN INDICATION
     Route: 065
     Dates: start: 1995
  10. ADVAIR HFA [Concomitant]
     Active Substance: FLUTICASONE PROPIONATE\SALMETEROL XINAFOATE
     Indication: PRODUCT USED FOR UNKNOWN INDICATION
     Route: 065
  11. TRAMADOL. [Concomitant]
     Active Substance: TRAMADOL
     Indication: PRODUCT USED FOR UNKNOWN INDICATION
     Route: 065
  12. XARELTO [Suspect]
     Active Substance: RIVAROXABAN
     Indication: CEREBROVASCULAR ACCIDENT PROPHYLAXIS
     Route: 048
     Dates: start: 20120605, end: 2013
  13. XARELTO [Suspect]
     Active Substance: RIVAROXABAN
     Indication: CEREBROVASCULAR ACCIDENT PROPHYLAXIS
     Route: 048
     Dates: start: 20140506, end: 20161103
  14. XARELTO [Suspect]
     Active Substance: RIVAROXABAN
     Indication: PERIPHERAL VENOUS DISEASE
     Route: 048
     Dates: start: 20120605, end: 2013
  15. XARELTO [Suspect]
     Active Substance: RIVAROXABAN
     Indication: PERIPHERAL VENOUS DISEASE
     Route: 048
     Dates: end: 20170309
  16. XARELTO [Suspect]
     Active Substance: RIVAROXABAN
     Indication: CARDIOVASCULAR DISORDER
     Route: 048
     Dates: start: 2013, end: 20140312
  17. XARELTO [Suspect]
     Active Substance: RIVAROXABAN
     Indication: ATRIAL FIBRILLATION
     Route: 048
     Dates: start: 20140506, end: 20161103
  18. XARELTO [Suspect]
     Active Substance: RIVAROXABAN
     Indication: CEREBROVASCULAR ACCIDENT PROPHYLAXIS
     Route: 048
     Dates: start: 2013, end: 20140312
  19. XARELTO [Suspect]
     Active Substance: RIVAROXABAN
     Indication: CARDIOVASCULAR DISORDER
     Route: 048
     Dates: start: 20120605, end: 2013
  20. TRAMADOL. [Concomitant]
     Active Substance: TRAMADOL
     Indication: PRODUCT USED FOR UNKNOWN INDICATION
     Route: 065
  21. PRAVASTATIN. [Concomitant]
     Active Substance: PRAVASTATIN
     Indication: PRODUCT USED FOR UNKNOWN INDICATION
     Route: 065
     Dates: start: 1995

REACTIONS (3)
  - Gastrointestinal haemorrhage [Unknown]
  - Vaginal haemorrhage [Unknown]
  - Haematuria [Unknown]

NARRATIVE: CASE EVENT DATE: 20121120
